FAERS Safety Report 9379581 (Version 1)
Quarter: 2013Q3

REPORT INFORMATION
  Report Type: Spontaneous
  Country: US (occurrence: US)
  Receive Date: 20130702
  Receipt Date: 20130702
  Transmission Date: 20140515
  Serious: No
  Sender: FDA-Public Use
  Company Number: US-BAYER-2013-080440

PATIENT
  Age: 13 Year
  Sex: Female

DRUGS (2)
  1. ALEVE CAPLET [Suspect]
     Indication: ARTHRALGIA
  2. TYLENOL [PARACETAMOL] [Concomitant]

REACTIONS (1)
  - Drug ineffective [None]
